FAERS Safety Report 15551561 (Version 1)
Quarter: 2018Q4

REPORT INFORMATION
  Report Type: Spontaneous
  Country: JP (occurrence: JP)
  Receive Date: 20181025
  Receipt Date: 20181025
  Transmission Date: 20190205
  Serious: Yes (Other)
  Sender: FDA-Public Use
  Company Number: JP-DSJP-DSJ-2018-144000

PATIENT

DRUGS (5)
  1. LIXIANA OD TABLETS 30MG [Suspect]
     Active Substance: EDOXABAN TOSYLATE
     Indication: PRODUCT USED FOR UNKNOWN INDICATION
     Dosage: 30 MG, QD
  2. EPADEL                             /01682402/ [Suspect]
     Active Substance: ICOSAPENT ETHYL
     Route: 065
  3. RENIVACE [Concomitant]
     Active Substance: ENALAPRIL
     Route: 065
  4. LOXOPROFEN                         /00890702/ [Suspect]
     Active Substance: LOXOPROFEN
     Indication: PRODUCT USED FOR UNKNOWN INDICATION
     Dosage: UNK
     Route: 065
  5. URIEF [Suspect]
     Active Substance: SILODOSIN
     Dosage: UNK
     Route: 065

REACTIONS (2)
  - Anaemia [Unknown]
  - Platelet count decreased [Unknown]
